FAERS Safety Report 8002495-3 (Version None)
Quarter: 2011Q4

REPORT INFORMATION
  Report Type: 
  Country: None (occurrence: None)
  Receive Date: 20111222
  Receipt Date: 20111117
  Transmission Date: 20120403
  Serious: Yes (Death)
  Sender: FDA-Public Use
  Company Number: US-PFIZER INC-2011310524

PATIENT
  Sex: Male

DRUGS (1)
  1. VFEND [Suspect]
     Indication: BACTERAEMIA
     Dosage: 50 MG TWICE DAILY (BID) 200 MG TWICE DAILY (BID)
     Dates: start: 20111027

REACTIONS (1)
  - CARDIAC DEATH [None]
